FAERS Safety Report 7957858-9 (Version None)
Quarter: 2011Q4

REPORT INFORMATION
  Report Type: 
  Country: None (occurrence: None)
  Receive Date: 20111205
  Receipt Date: 20111123
  Transmission Date: 20120403
  Serious: Yes (Death, Disabling)
  Sender: FDA-Public Use
  Company Number: IT-MPIJNJ-2011-04802

PATIENT

DRUGS (3)
  1. VELCADE [Suspect]
     Indication: MULTIPLE MYELOMA
     Dosage: 1.3 MG/M2, UNK
     Route: 042
     Dates: start: 20110127, end: 20110204
  2. DEXAMETHASONE [Concomitant]
     Dosage: 40 MG, UNK
     Route: 042
     Dates: start: 20110127
  3. DOXORUBICIN HCL [Concomitant]
     Dosage: 30 MG/M2, UNK
     Route: 042
     Dates: start: 20110127

REACTIONS (2)
  - ASTHENIA [None]
  - AREFLEXIA [None]
